FAERS Safety Report 20216640 (Version 1)
Quarter: 2021Q4

REPORT INFORMATION
  Report Type: Spontaneous
  Country: US (occurrence: None)
  Receive Date: 20211221
  Receipt Date: 20211221
  Transmission Date: 20220304
  Serious: Yes (Hospitalization)
  Sender: FDA-Public Use
  Company Number: None

PATIENT
  Age: 71 Year
  Sex: Male
  Weight: 113 kg

DRUGS (1)
  1. RIVAROXABAN [Suspect]
     Active Substance: RIVAROXABAN
     Indication: Atrial fibrillation
     Dates: start: 20170424, end: 20210913

REACTIONS (6)
  - Faeces discoloured [None]
  - Haematuria [None]
  - Therapy cessation [None]
  - Haemoglobin decreased [None]
  - Gastric haemorrhage [None]
  - Gastric polyps [None]

NARRATIVE: CASE EVENT DATE: 20210902
